FAERS Safety Report 11067336 (Version 1)
Quarter: 2015Q2

REPORT INFORMATION
  Report Type: Spontaneous
  Country: GB (occurrence: GB)
  Receive Date: 20150426
  Receipt Date: 20150426
  Transmission Date: 20150821
  Serious: Yes (Hospitalization, Other)
  Sender: FDA-Public Use
  Company Number: GB-MERCK-1504GBR020734

PATIENT
  Age: 73 Year
  Sex: Male

DRUGS (4)
  1. CYTARABINE. [Suspect]
     Active Substance: CYTARABINE
     Indication: ACUTE PROMYELOCYTIC LEUKAEMIA
     Dosage: UNKNOWN (UNKNOWN,UNKNOWN)
     Route: 065
  2. DAUNORUBICIN [Suspect]
     Active Substance: DAUNORUBICIN
     Indication: ACUTE PROMYELOCYTIC LEUKAEMIA
     Dosage: UNKNOWN (UNKNOWN,UNKNOWN)
     Route: 065
  3. DEXAMETHASONE. [Suspect]
     Active Substance: DEXAMETHASONE
     Indication: PRODUCT USED FOR UNKNOWN INDICATION
     Dosage: 20 MG (10 MG,2 IN 1 D)
     Route: 042
  4. TRETINOIN. [Suspect]
     Active Substance: TRETINOIN
     Indication: ACUTE PROMYELOCYTIC LEUKAEMIA
     Dosage: UNKNOWN (UNKNOWN,UNKNOWN)
     Route: 065

REACTIONS (6)
  - Acute promyelocytic leukaemia differentiation syndrome [Recovered/Resolved]
  - Neutropenia [Recovered/Resolved]
  - Dyspnoea [Unknown]
  - Off label use [Unknown]
  - Weight increased [Unknown]
  - Pyrexia [Unknown]
